FAERS Safety Report 15941707 (Version 3)
Quarter: 2019Q2

REPORT INFORMATION
  Report Type: Spontaneous
  Country: US (occurrence: US)
  Receive Date: 20190208
  Receipt Date: 20190426
  Transmission Date: 20190711
  Serious: Yes (Other)
  Sender: FDA-Public Use
  Company Number: US-ASTRAZENECA-2018SF00234

PATIENT
  Age: 691 Month
  Sex: Male

DRUGS (33)
  1. VITAMIN D3 [Concomitant]
     Active Substance: CHOLECALCIFEROL
  2. ATENOLOL. [Concomitant]
     Active Substance: ATENOLOL
     Dates: start: 20100601
  3. CLINDAMYCIN. [Concomitant]
     Active Substance: CLINDAMYCIN
     Dates: start: 20161223
  4. PREVACID [Suspect]
     Active Substance: LANSOPRAZOLE
     Route: 065
     Dates: start: 200202, end: 200612
  5. PROTONIX [Suspect]
     Active Substance: PANTOPRAZOLE SODIUM
     Indication: GASTROOESOPHAGEAL REFLUX DISEASE
     Route: 048
     Dates: start: 20040419
  6. CRESTOR [Concomitant]
     Active Substance: ROSUVASTATIN CALCIUM
     Dates: start: 20081221
  7. RANITIDINE. [Concomitant]
     Active Substance: RANITIDINE
     Dates: start: 20121101
  8. NEXIUM [Suspect]
     Active Substance: ESOMEPRAZOLE MAGNESIUM
     Indication: GASTROOESOPHAGEAL REFLUX DISEASE
     Route: 048
     Dates: start: 200202, end: 200612
  9. NEXIUM 24HR [Suspect]
     Active Substance: ESOMEPRAZOLE MAGNESIUM
     Route: 048
     Dates: start: 200202, end: 200612
  10. SULFAMETHOXAZOLE [Concomitant]
     Active Substance: SULFAMETHOXAZOLE
     Dates: start: 20090803
  11. ETODOLAC. [Concomitant]
     Active Substance: ETODOLAC
     Dates: start: 20030614
  12. BEXTRA [Concomitant]
     Active Substance: VALDECOXIB
     Dates: start: 20030508
  13. SIMVASTATIN. [Concomitant]
     Active Substance: SIMVASTATIN
     Dates: start: 20070831
  14. DEXPAK [Concomitant]
     Active Substance: DEXAMETHASONE
     Dates: start: 20070418
  15. LORTAB [Concomitant]
     Active Substance: ACETAMINOPHEN\HYDROCODONE BITARTRATE
     Dates: start: 20070418
  16. OLOPATADINE. [Concomitant]
     Active Substance: OLOPATADINE
     Dates: start: 20161223
  17. NEXIUM [Suspect]
     Active Substance: ESOMEPRAZOLE MAGNESIUM
     Indication: GASTROOESOPHAGEAL REFLUX DISEASE
     Route: 048
     Dates: start: 20030608
  18. PRILOSEC [Suspect]
     Active Substance: OMEPRAZOLE MAGNESIUM
     Indication: GASTROOESOPHAGEAL REFLUX DISEASE
     Route: 048
     Dates: start: 200202, end: 200612
  19. PRILOSEC OTC [Suspect]
     Active Substance: OMEPRAZOLE MAGNESIUM
     Indication: GASTROOESOPHAGEAL REFLUX DISEASE
     Route: 048
     Dates: start: 2002, end: 2012
  20. PROTONIX [Suspect]
     Active Substance: PANTOPRAZOLE SODIUM
     Indication: GASTROOESOPHAGEAL REFLUX DISEASE
     Route: 065
     Dates: start: 200202, end: 200602
  21. VIOXX [Concomitant]
     Active Substance: ROFECOXIB
     Dates: start: 20040828
  22. MEDROL [Concomitant]
     Active Substance: METHYLPREDNISOLONE
     Dates: start: 20081009
  23. NEXIUM [Suspect]
     Active Substance: ESOMEPRAZOLE MAGNESIUM
     Indication: GASTROOESOPHAGEAL REFLUX DISEASE
     Route: 048
     Dates: start: 2002, end: 2012
  24. PRILOSEC [Suspect]
     Active Substance: OMEPRAZOLE MAGNESIUM
     Indication: GASTROOESOPHAGEAL REFLUX DISEASE
     Route: 048
     Dates: start: 2002, end: 2012
  25. PREVACID [Suspect]
     Active Substance: LANSOPRAZOLE
     Route: 048
     Dates: start: 20060131
  26. MELOXICAM. [Concomitant]
     Active Substance: MELOXICAM
     Dates: start: 20100601
  27. NYSTATIN. [Concomitant]
     Active Substance: NYSTATIN
     Dates: start: 20041201
  28. FLEXERIL [Concomitant]
     Active Substance: CYCLOBENZAPRINE HYDROCHLORIDE
     Dates: start: 20031009
  29. DOXYCYCLINE. [Concomitant]
     Active Substance: DOXYCYCLINE
     Dates: start: 20121203
  30. PRILOSEC OTC [Suspect]
     Active Substance: OMEPRAZOLE MAGNESIUM
     Indication: GASTROOESOPHAGEAL REFLUX DISEASE
     Route: 048
     Dates: start: 200202, end: 200612
  31. MECLIZINE [Concomitant]
     Active Substance: MECLIZINE HYDROCHLORIDE
     Dates: start: 20070831
  32. CELEBREX [Concomitant]
     Active Substance: CELECOXIB
     Dates: start: 20040405
  33. PROTONIX [Suspect]
     Active Substance: PANTOPRAZOLE SODIUM
     Indication: GASTROOESOPHAGEAL REFLUX DISEASE
     Route: 065
     Dates: start: 2002, end: 2012

REACTIONS (1)
  - Chronic kidney disease [Not Recovered/Not Resolved]

NARRATIVE: CASE EVENT DATE: 201307
